FAERS Safety Report 14637206 (Version 1)
Quarter: 2018Q1

REPORT INFORMATION
  Report Type: Spontaneous
  Country: IT (occurrence: IT)
  Receive Date: 20180314
  Receipt Date: 20180314
  Transmission Date: 20180509
  Serious: Yes (Other)
  Sender: FDA-Public Use
  Company Number: IT-SA-2018SA060876

PATIENT
  Age: 72 Year
  Sex: Female
  Weight: 70 kg

DRUGS (3)
  1. ZALTRAP [Suspect]
     Active Substance: ZIV-AFLIBERCEPT
     Indication: COLON CANCER METASTATIC
     Route: 042
     Dates: start: 20171218, end: 20171218
  2. IRINOTECAN [Concomitant]
     Active Substance: IRINOTECAN
     Indication: COLON CANCER METASTATIC
     Route: 042
     Dates: start: 20171218, end: 20171218
  3. FLUOROURACIL TEVA [Concomitant]
     Active Substance: FLUOROURACIL
     Indication: COLON CANCER METASTATIC
     Route: 042
     Dates: start: 20171218, end: 20171218

REACTIONS (3)
  - Disorientation [Recovered/Resolved]
  - Encephalopathy [Recovered/Resolved]
  - Hypertension [Recovered/Resolved]

NARRATIVE: CASE EVENT DATE: 20180115
